FAERS Safety Report 14359568 (Version 1)
Quarter: 2018Q1

REPORT INFORMATION
  Report Type: Spontaneous
  Country: US (occurrence: US)
  Receive Date: 20180105
  Receipt Date: 20180105
  Transmission Date: 20180509
  Serious: No
  Sender: FDA-Public Use
  Company Number: -SAAVPROD-BI2017BI004231

PATIENT
  Age: 73 Year
  Sex: Female

DRUGS (4)
  1. INSULIN GLARGINE [Concomitant]
     Active Substance: INSULIN GLARGINE
     Indication: DIABETES MELLITUS
     Route: 058
     Dates: start: 2016
  2. RANITIDINE HYDROCHLORIDE. [Suspect]
     Active Substance: RANITIDINE HYDROCHLORIDE
     Indication: DYSPEPSIA
     Route: 048
     Dates: start: 20170121
  3. INSULIN GLULISINE [Concomitant]
     Active Substance: INSULIN GLULISINE
     Indication: PRODUCT USED FOR UNKNOWN INDICATION
     Dosage: FORM STRENGTH: 60 WITH SLIDING SCALE UNITS ;
     Route: 058
  4. HYDROCODONE/PARACETAMOL [Concomitant]
     Indication: ARTHRITIS
     Dosage: FORM STRENGTH: 7.5 MG / 325 MG; UNIT DOSE: 7.5 MG / 325 MG, DAILY DOSE:  30 MG / 1300MG .
     Route: 048

REACTIONS (1)
  - Faeces discoloured [Unknown]

NARRATIVE: CASE EVENT DATE: 20170123
